FAERS Safety Report 23888888 (Version 1)
Quarter: 2024Q2

REPORT INFORMATION
  Report Type: Spontaneous
  Country: CY (occurrence: None)
  Receive Date: 20240523
  Receipt Date: 20240523
  Transmission Date: 20240715
  Serious: Yes (Other)
  Sender: FDA-Public Use
  Company Number: 2024A118972

PATIENT
  Age: 31 Year
  Sex: Female

DRUGS (4)
  1. SEROQUEL XR [Suspect]
     Active Substance: QUETIAPINE FUMARATE
     Indication: Mania
     Dosage: STRENGTH: 50MG, 150MG, 300MG
  2. SEROQUEL XR [Suspect]
     Active Substance: QUETIAPINE FUMARATE
     Indication: Mania
     Dosage: STRENGTH: 50MG, 150MG, 300MG
  3. HALOXEN [Concomitant]
     Indication: Drug intolerance
  4. HALOXEN [Concomitant]
     Indication: Weight increased

REACTIONS (3)
  - Hallucination, auditory [Recovering/Resolving]
  - Anxiety [Recovering/Resolving]
  - Weight decreased [Recovering/Resolving]
